FAERS Safety Report 7657370-0 (Version None)
Quarter: 2011Q3

REPORT INFORMATION
  Report Type: 
  Country: None (occurrence: None)
  Receive Date: 20110804
  Receipt Date: 20110801
  Transmission Date: 20111222
  Serious: Yes (Other)
  Sender: FDA-Public Use
  Company Number: US-SANOFI-AVENTIS-2011SA049303

PATIENT
  Sex: Male

DRUGS (2)
  1. PLAVIX [Suspect]
     Indication: STENT PLACEMENT
     Route: 065
     Dates: start: 20060701
  2. PLAVIX [Suspect]
     Route: 065

REACTIONS (5)
  - MUSCULOSKELETAL PAIN [None]
  - CORONARY ARTERIAL STENT INSERTION [None]
  - INTERVERTEBRAL DISC PROTRUSION [None]
  - URINARY INCONTINENCE [None]
  - CHEST PAIN [None]
